FAERS Safety Report 8371516-0 (Version None)
Quarter: 2012Q2

REPORT INFORMATION
  Report Type: 
  Country: None (occurrence: None)
  Receive Date: 20120518
  Receipt Date: 20120509
  Transmission Date: 20120825
  Serious: Yes (Hospitalization)
  Sender: FDA-Public Use
  Company Number: BR-ASTRAZENECA-2012SE06894

PATIENT
  Age: 73 Year
  Sex: Female
  Weight: 58 kg

DRUGS (6)
  1. DIAMICRON [Concomitant]
     Indication: DIABETES MELLITUS
     Route: 048
  2. VYTORIN [Concomitant]
     Indication: BLOOD CHOLESTEROL INCREASED
     Dosage: 10/20 MG
     Route: 048
  3. PROCIMAX [Concomitant]
     Indication: DEPRESSION
     Route: 048
  4. IRBESARTAN [Concomitant]
     Indication: HYPERTENSION
     Route: 048
  5. NEXIUM [Suspect]
     Indication: GASTRITIS
     Route: 048
     Dates: start: 20090101
  6. GALVUS MET [Concomitant]
     Indication: DIABETES MELLITUS
     Dosage: 50/850 MG
     Route: 048

REACTIONS (2)
  - ALOPECIA [None]
  - BREAST MASS [None]
